FAERS Safety Report 11633864 (Version 1)
Quarter: 2015Q4

REPORT INFORMATION
  Report Type: Spontaneous
  Country: ES (occurrence: ES)
  Receive Date: 20151015
  Receipt Date: 20151015
  Transmission Date: 20160304
  Serious: Yes (Other)
  Sender: FDA-Public Use
  Company Number: ES-ROXANE LABORATORIES, INC.-2015-RO-01703RO

PATIENT
  Age: 0 Day
  Sex: Female
  Weight: 1.4 kg

DRUGS (2)
  1. CYCLOPHOSPHAMIDE. [Suspect]
     Active Substance: CYCLOPHOSPHAMIDE
     Indication: EXPOSURE DURING PREGNANCY
     Route: 064
  2. DOXORUBICIN [Suspect]
     Active Substance: DOXORUBICIN
     Indication: EXPOSURE DURING PREGNANCY
     Route: 064

REACTIONS (3)
  - Respiratory tract infection [Unknown]
  - Low birth weight baby [Recovered/Resolved]
  - Premature baby [Recovered/Resolved]
